FAERS Safety Report 8111217-7 (Version None)
Quarter: 2012Q1

REPORT INFORMATION
  Report Type: 
  Country: None (occurrence: None)
  Receive Date: 20120203
  Receipt Date: 20110628
  Transmission Date: 20120608
  Serious: No
  Sender: FDA-Public Use
  Company Number: US-GLAXOSMITHKLINE-A0933467A

PATIENT

DRUGS (2)
  1. LAMICTAL [Suspect]
     Indication: SEROTONIN SYNDROME
     Dosage: 550MG PER DAY
     Route: 048
  2. NO CONCURRENT MEDICATION [Concomitant]

REACTIONS (4)
  - RETCHING [None]
  - THERAPEUTIC RESPONSE UNEXPECTED [None]
  - ATAXIA [None]
  - OVERDOSE [None]
